FAERS Safety Report 18411260 (Version 2)
Quarter: 2020Q4

REPORT INFORMATION
  Report Type: Report from Study
  Country: CA (occurrence: CA)
  Receive Date: 20201021
  Receipt Date: 20201110
  Transmission Date: 20210114
  Serious: Yes (Other)
  Sender: FDA-Public Use
  Company Number: CA-NALPROPION PHARMACEUTICALS INC.-2020-010795

PATIENT

DRUGS (15)
  1. CONTRAVE [Suspect]
     Active Substance: BUPROPION HYDROCHLORIDE\NALTREXONE HYDROCHLORIDE
     Dosage: STRENGTH: 90MG/8MG 2 PILL IN THE MORNING AND 2 PILL IN THE EVENING
     Route: 048
     Dates: start: 2020, end: 20201015
  2. CONTRAVE [Suspect]
     Active Substance: BUPROPION HYDROCHLORIDE\NALTREXONE HYDROCHLORIDE
     Dosage: STRENGTH: 90MG/8MG (2 DOSAGE FORMS, 2 IN 1 D)
     Route: 048
     Dates: start: 20200928, end: 20200929
  3. SAXENDA [Concomitant]
     Active Substance: LIRAGLUTIDE
     Indication: WEIGHT CONTROL
     Dosage: STARTED A YEAR AGO PRIOR TO DATE OF REPORT
     Dates: start: 2019
  4. CONTRAVE [Suspect]
     Active Substance: BUPROPION HYDROCHLORIDE\NALTREXONE HYDROCHLORIDE
     Dosage: STRENGTH: 90MG/8MG 1 TABLET IN THE MORNING
     Route: 048
     Dates: start: 20200803, end: 20200803
  5. CONTRAVE [Suspect]
     Active Substance: BUPROPION HYDROCHLORIDE\NALTREXONE HYDROCHLORIDE
     Dosage: STRENGTH: 90MG/8MG (1 DOSAGE FORMS, 2 IN 1 D)
     Route: 048
     Dates: start: 20200715, end: 20200721
  6. CONTRAVE [Suspect]
     Active Substance: BUPROPION HYDROCHLORIDE\NALTREXONE HYDROCHLORIDE
     Dosage: STRENGTH: 90MG/8MG 2 TABLETS IN THE MORNING AND 2 TABLETS IN THE EVENING
     Route: 048
     Dates: start: 20200729, end: 20200801
  7. CONTRAVE [Suspect]
     Active Substance: BUPROPION HYDROCHLORIDE\NALTREXONE HYDROCHLORIDE
     Dosage: STRENGTH: 90MG/8MG 2 TABLETS IN THE MORNING AND ONE TABLET IN THE EVENING
     Route: 048
     Dates: start: 20200722, end: 20200728
  8. CONTRAVE [Suspect]
     Active Substance: BUPROPION HYDROCHLORIDE\NALTREXONE HYDROCHLORIDE
     Dosage: STRENGTH: 90MG/8MG, 2 PILLS IN THE MORNING AND 1 PILL THIS EVENING.
     Route: 048
     Dates: start: 20200909, end: 20200927
  9. CONTRAVE [Suspect]
     Active Substance: BUPROPION HYDROCHLORIDE\NALTREXONE HYDROCHLORIDE
     Indication: WEIGHT CONTROL
     Dosage: STRENGTH: 90MG/8MG (1 DOSAGE FORMS,1 IN 1 D)
     Route: 048
     Dates: start: 20200708, end: 20200714
  10. CONTRAVE [Suspect]
     Active Substance: BUPROPION HYDROCHLORIDE\NALTREXONE HYDROCHLORIDE
     Dosage: STRENGTH: 90MG/8MG, FOR 2 WEEKS (1 DOSAGE FORMS, 2 IN 1 D)
     Route: 048
     Dates: start: 20200826, end: 20200908
  11. CONTRAVE [Suspect]
     Active Substance: BUPROPION HYDROCHLORIDE\NALTREXONE HYDROCHLORIDE
     Dosage: STRENGTH: 90MG/8MG (1 DOSAGE FORMS, 1 IN 1 D)
     Route: 048
     Dates: start: 20200930, end: 2020
  12. OMEGA 3                            /01334101/ [Concomitant]
     Active Substance: OMEGA-3 FATTY ACIDS
     Indication: ROUTINE HEALTH MAINTENANCE
     Dosage: DAILY
     Route: 048
  13. CONTRAVE [Suspect]
     Active Substance: BUPROPION HYDROCHLORIDE\NALTREXONE HYDROCHLORIDE
     Dosage: STRENGTH: 90MG/8MG 1 TABLET IN THE MORNING AND 2 TABLETS IN THE SUPPER
     Route: 048
     Dates: start: 20200802, end: 20200802
  14. CONTRAVE [Suspect]
     Active Substance: BUPROPION HYDROCHLORIDE\NALTREXONE HYDROCHLORIDE
     Dosage: STRENGTH: 90MG/8MG, SECOND ATTEMPT 1 TABLET AT SUPPER
     Route: 048
     Dates: start: 20200806, end: 202008
  15. VITAMIN D3 [Concomitant]
     Active Substance: CHOLECALCIFEROL
     Indication: ROUTINE HEALTH MAINTENANCE
     Dosage: DAILY
     Route: 048

REACTIONS (12)
  - Nausea [Unknown]
  - Dizziness [Unknown]
  - Abdominal pain upper [Unknown]
  - Haematemesis [Unknown]
  - Dysgeusia [Unknown]
  - Headache [Unknown]
  - Vomiting [Recovered/Resolved]
  - Nervousness [Unknown]
  - Hunger [Recovered/Resolved]
  - Illness [Unknown]
  - Gastric disorder [Unknown]
  - Stress [Unknown]

NARRATIVE: CASE EVENT DATE: 2020
